FAERS Safety Report 15725989 (Version 1)
Quarter: 2018Q4

REPORT INFORMATION
  Report Type: Spontaneous
  Country: US (occurrence: US)
  Receive Date: 20181216
  Receipt Date: 20181216
  Transmission Date: 20190205
  Serious: No
  Sender: FDA-Public Use
  Company Number: US-SUPERNUS PHARMACEUTICALS, INC.-2018SUP00049

PATIENT
  Age: 65 Year
  Sex: Male

DRUGS (5)
  1. NEURONTIN [Suspect]
     Active Substance: GABAPENTIN
     Indication: PAIN
     Dosage: UNK
     Dates: start: 201802, end: 201802
  2. TROKENDI XR [Suspect]
     Active Substance: TOPIRAMATE
     Indication: COGNITIVE DISORDER
     Dosage: 25 MG, 1X/DAY
     Route: 048
     Dates: start: 20171229, end: 201801
  3. TROKENDI XR [Suspect]
     Active Substance: TOPIRAMATE
     Indication: HEADACHE
  4. TROKENDI XR [Suspect]
     Active Substance: TOPIRAMATE
     Indication: HEADACHE
  5. TROKENDI XR [Suspect]
     Active Substance: TOPIRAMATE
     Indication: COGNITIVE DISORDER
     Dosage: 50 MG, 1X/DAY
     Route: 048
     Dates: start: 201801

REACTIONS (8)
  - Rhinorrhoea [Recovering/Resolving]
  - Influenza [Recovered/Resolved]
  - Pain [Recovering/Resolving]
  - Drug effect incomplete [Not Recovered/Not Resolved]
  - Product dose omission [Recovered/Resolved]
  - Off label use [Not Recovered/Not Resolved]
  - Nasal congestion [Recovering/Resolving]
  - Sneezing [Not Recovered/Not Resolved]

NARRATIVE: CASE EVENT DATE: 201712
